FAERS Safety Report 20860431 (Version 1)
Quarter: 2022Q2

REPORT INFORMATION
  Report Type: Spontaneous
  Country: US (occurrence: US)
  Receive Date: 20220523
  Receipt Date: 20220523
  Transmission Date: 20220721
  Serious: Yes (Death, Hospitalization, Other)
  Sender: FDA-Public Use
  Company Number: US-NATCOUSA-2022-NATCOUSA-000044

PATIENT
  Age: 92 Year
  Sex: Male

DRUGS (2)
  1. AZACITIDINE [Suspect]
     Active Substance: AZACITIDINE
     Indication: Lung adenocarcinoma stage I
     Route: 042
  2. VENETOCLAX [Suspect]
     Active Substance: VENETOCLAX
     Indication: Cytopenia

REACTIONS (6)
  - Cytopenia [Fatal]
  - Weight decreased [Fatal]
  - Fatigue [Fatal]
  - Nausea [Fatal]
  - Acute myeloid leukaemia [Fatal]
  - Leukaemia recurrent [Fatal]
